FAERS Safety Report 4284499-X (Version None)
Quarter: 2004Q1

REPORT INFORMATION
  Report Type: 
  Country: None (occurrence: None)
  Receive Date: 20040130
  Receipt Date: 20040130
  Transmission Date: 20041129
  Serious: Yes (Life-Threatening)
  Sender: FDA-Public Use
  Company Number: None

PATIENT
  Age: 44 Year
  Sex: Female

DRUGS (1)
  1. ANAPROX DS [Suspect]
     Indication: POST PROCEDURAL PAIN
     Dosage: EVERY 12 HOURS

REACTIONS (1)
  - PULMONARY OEDEMA [None]
